FAERS Safety Report 8617003 (Version 3)
Quarter: 2012Q4

REPORT INFORMATION
  Report Type: 
  Country: US (occurrence: US)
  Receive Date: 20120615
  Receipt Date: 20120920
  Transmission Date: 20130627
  Serious: Yes (Hospitalization)
  Sender: FDA-Public Use
  Company Number: US-BAYER-2012-056775

PATIENT
  Age: 62 Year
  Sex: Female
  Weight: 59.1 kg

DRUGS (13)
  1. SORAFENIB (RAF KINASE INHIBITOR) [Suspect]
     Indication: HEPATIC NEOPLASM MALIGNANT
     Dosage: 400 mg, BID
     Route: 048
     Dates: start: 20120509, end: 20120513
  2. UNSPECIFIED INGREDIENT [Suspect]
     Indication: HEPATIC NEOPLASM MALIGNANT
     Dosage: 20 mg/kg, Q3WK
     Route: 042
     Dates: start: 20120309
  3. LANTUS [Concomitant]
     Dosage: UNK
  4. HYDROCHLOROTHIAZIDE [Concomitant]
     Dosage: UNK
  5. AMITRIPTYLINE [Concomitant]
     Dosage: UNK
  6. IMURAN [Concomitant]
     Dosage: UNK
  7. AVAPRO [Concomitant]
     Dosage: UNK
  8. COLACE [Concomitant]
     Dosage: UNK
  9. NEXIUM [Concomitant]
     Dosage: UNK
  10. METHADONE [Concomitant]
     Dosage: UNK
  11. COMPAZINE [Concomitant]
     Dosage: UNK
  12. ZOFRAN [Concomitant]
     Dosage: UNK
  13. NOVOLOG [Concomitant]

REACTIONS (14)
  - Colitis [Recovered/Resolved]
  - Pyrexia [None]
  - Oropharyngeal pain [None]
  - Cough [None]
  - Fatigue [None]
  - Hyponatraemia [None]
  - Dehydration [None]
  - Liver abscess [None]
  - Tumour necrosis [None]
  - Hepatic cirrhosis [None]
  - Portal hypertension [None]
  - Haemoglobin decreased [None]
  - Blood creatinine increased [None]
  - Leukocytosis [None]
